FAERS Safety Report 9665440 (Version 1)
Quarter: 2013Q4

REPORT INFORMATION
  Report Type: Spontaneous
  Country: DE (occurrence: DE)
  Receive Date: 20131104
  Receipt Date: 20131104
  Transmission Date: 20140711
  Serious: Yes (Hospitalization)
  Sender: FDA-Public Use
  Company Number: DE-SA-2013SA109699

PATIENT
  Age: 9 Year
  Sex: Male
  Weight: 39 kg

DRUGS (7)
  1. CEFOTAXIM [Suspect]
     Indication: NEUROBORRELIOSIS
     Dosage: 3X2G
     Route: 042
     Dates: start: 20130906, end: 20130919
  2. ACICLOVIR [Suspect]
     Indication: FACIAL PARESIS
     Dosage: 3X190MG
     Route: 042
     Dates: start: 20130906, end: 20130912
  3. NOVALGIN [Concomitant]
     Indication: HEADACHE
     Route: 048
     Dates: start: 20130905, end: 20130920
  4. NOVALGIN [Concomitant]
     Indication: PYREXIA
     Route: 048
     Dates: start: 20130905, end: 20130920
  5. NOVALGIN [Concomitant]
     Indication: HEADACHE
     Route: 042
     Dates: start: 20130905, end: 20130920
  6. NOVALGIN [Concomitant]
     Indication: PYREXIA
     Route: 042
     Dates: start: 20130905, end: 20130920
  7. IBUPROFEN [Concomitant]
     Indication: HEADACHE
     Route: 048
     Dates: start: 20130905, end: 20130919

REACTIONS (6)
  - C-reactive protein increased [Recovering/Resolving]
  - Leukopenia [Recovering/Resolving]
  - Pyrexia [Recovering/Resolving]
  - Rash [Recovering/Resolving]
  - Thrombocytopenia [Recovering/Resolving]
  - Hepatic enzyme increased [Recovering/Resolving]
